FAERS Safety Report 10459543 (Version 1)
Quarter: 2014Q3

REPORT INFORMATION
  Report Type: Spontaneous
  Country: US (occurrence: US)
  Receive Date: 20140917
  Receipt Date: 20140917
  Transmission Date: 20150326
  Serious: No
  Sender: FDA-Public Use
  Company Number: US-ELI_LILLY_AND_COMPANY-US201409005760

PATIENT
  Sex: Female

DRUGS (3)
  1. FORTEO [Suspect]
     Active Substance: TERIPARATIDE
     Indication: OSTEOPOROSIS
     Dosage: UNK
     Route: 065
     Dates: start: 2006
  2. FORTEO [Suspect]
     Active Substance: TERIPARATIDE
     Dosage: UNK UNK, OTHER
     Route: 065
     Dates: start: 201403
  3. VITAMIN D [Concomitant]
     Active Substance: CHOLECALCIFEROL

REACTIONS (6)
  - Compression fracture [Unknown]
  - Arthralgia [Unknown]
  - Pain [Unknown]
  - Thirst [Unknown]
  - Blood calcium increased [Unknown]
  - Alopecia [Unknown]
